FAERS Safety Report 15095628 (Version 1)
Quarter: 2018Q2

REPORT INFORMATION
  Report Type: Spontaneous
  Country: US (occurrence: US)
  Receive Date: 20180608
  Receipt Date: 20180608
  Transmission Date: 20180711
  Serious: Yes (Death, Hospitalization)
  Sender: FDA-Public Use
  Company Number: None

PATIENT
  Sex: Male
  Weight: 151.9 kg

DRUGS (4)
  1. VINCRISTINE SULFATE. [Suspect]
     Active Substance: VINCRISTINE SULFATE
     Dates: end: 20121004
  2. PREDNISONE. [Suspect]
     Active Substance: PREDNISONE
     Dates: end: 20121004
  3. DOXORUBICIN HYDROCHLORIDE. [Suspect]
     Active Substance: DOXORUBICIN HYDROCHLORIDE
     Dates: end: 20121004
  4. CYTARABINE. [Suspect]
     Active Substance: CYTARABINE
     Dates: end: 20121004

REACTIONS (5)
  - Sepsis [None]
  - Respiratory failure [None]
  - Anaemia [None]
  - Transfusion-related acute lung injury [None]
  - Pneumonia staphylococcal [None]

NARRATIVE: CASE EVENT DATE: 20121004
